FAERS Safety Report 9634092 (Version 1)
Quarter: 2013Q4

REPORT INFORMATION
  Report Type: Spontaneous
  Country: AU (occurrence: AU)
  Receive Date: 20131021
  Receipt Date: 20131021
  Transmission Date: 20140711
  Serious: Yes (Other)
  Sender: FDA-Public Use
  Company Number: AU-NOVOPROD-390059

PATIENT
  Sex: Male

DRUGS (1)
  1. MIXTARD 30/70 [Suspect]
     Indication: DIABETES MELLITUS
     Dosage: UNK
     Route: 065

REACTIONS (2)
  - Convulsion [Recovered/Resolved]
  - Diabetes mellitus [Unknown]
